FAERS Safety Report 5425318-5 (Version None)
Quarter: 2007Q3

REPORT INFORMATION
  Report Type: 
  Country: None (occurrence: None)
  Receive Date: 20070824
  Receipt Date: 20070814
  Transmission Date: 20080115
  Serious: Yes (Hospitalization, Other)
  Sender: FDA-Public Use
  Company Number: SE-PFIZER INC-2007066482

PATIENT
  Sex: Female

DRUGS (1)
  1. CHAMPIX [Suspect]
     Indication: SMOKING CESSATION THERAPY
     Dosage: TEXT:DAILY
     Route: 048

REACTIONS (7)
  - ASTHENIA [None]
  - DEPRESSED MOOD [None]
  - FATIGUE [None]
  - HAEMOGLOBIN DECREASED [None]
  - MALAISE [None]
  - PALLOR [None]
  - SYNCOPE [None]
